FAERS Safety Report 10570503 (Version 1)
Quarter: 2014Q4

REPORT INFORMATION
  Report Type: Spontaneous
  Country: DE (occurrence: DE)
  Receive Date: 20141107
  Receipt Date: 20141107
  Transmission Date: 20150529
  Serious: Yes (Death, Life-Threatening, Hospitalization)
  Sender: FDA-Public Use
  Company Number: DE-OTSUKA-US-2014-13283

PATIENT

DRUGS (1)
  1. DACOGEN [Suspect]
     Active Substance: DECITABINE
     Indication: ACUTE MYELOID LEUKAEMIA
     Dosage: 30 MG MILLIGRAM(S), DAILY DOSE
     Route: 065
     Dates: start: 20140428, end: 20140502

REACTIONS (2)
  - Pneumonia [Fatal]
  - Renal failure [Not Recovered/Not Resolved]

NARRATIVE: CASE EVENT DATE: 20140504
